FAERS Safety Report 6387609-3 (Version None)
Quarter: 2009Q4

REPORT INFORMATION
  Report Type: 
  Country: None (occurrence: None)
  Receive Date: 20091005
  Receipt Date: 20090928
  Transmission Date: 20100525
  Serious: No
  Sender: FDA-Public Use
  Company Number: US-JNJFOC-20090902005

PATIENT
  Sex: Female

DRUGS (12)
  1. FENTANYLL TRANSDERMAL SYSTEM [Suspect]
     Route: 062
  2. FENTANYLL TRANSDERMAL SYSTEM [Suspect]
     Route: 062
  3. FENTANYLL TRANSDERMAL SYSTEM [Suspect]
     Route: 062
  4. FENTANYLL TRANSDERMAL SYSTEM [Suspect]
     Indication: PAIN MANAGEMENT
     Route: 062
  5. FENTANYL [Suspect]
     Dosage: FIVE TIMES
     Route: 042
  6. FENTANYL [Suspect]
     Dosage: 4 TIMES
     Route: 042
  7. FENTANYL [Suspect]
     Indication: ANAESTHESIA
     Dosage: BY PATIENT CONTROLLED ANALGESIA
     Route: 042
  8. SEVOFLURANE [Suspect]
     Indication: GENERAL ANAESTHESIA
     Route: 055
  9. PROPOFOL [Suspect]
     Indication: GENERAL ANAESTHESIA
     Route: 042
  10. MIDAZOLAM HCL [Suspect]
     Indication: GENERAL ANAESTHESIA
     Route: 042
  11. HYDROCODONE [Concomitant]
     Dosage: EVERY 4 HOURS
     Route: 048
  12. ACETAMINOPHEN [Concomitant]
     Route: 048

REACTIONS (4)
  - CAESAREAN SECTION [None]
  - DRUG EXPOSURE DURING PREGNANCY [None]
  - DRUG INTOLERANCE [None]
  - INAPPROPRIATE SCHEDULE OF DRUG ADMINISTRATION [None]
